FAERS Safety Report 24837975 (Version 6)
Quarter: 2025Q4

REPORT INFORMATION
  Report Type: Spontaneous
  Country: JP (occurrence: JP)
  Receive Date: 20250113
  Receipt Date: 20251118
  Transmission Date: 20260118
  Serious: Yes (Other)
  Sender: ALEXION PHARMACEUTICALS
  Company Number: JP-ASTRAZENECA-240142006_013020_P_1

PATIENT
  Age: 36 Year
  Sex: Female
  Weight: 63 kg

DRUGS (16)
  1. TAGRISSO [Suspect]
     Active Substance: OSIMERTINIB
     Indication: Non-small cell lung cancer
     Dosage: 80 MILLIGRAM, QD
     Dates: start: 20241211, end: 20241231
  2. TAGRISSO [Suspect]
     Active Substance: OSIMERTINIB
     Dosage: 80 MILLIGRAM, QD
     Dates: start: 20250120, end: 20250203
  3. TAGRISSO [Suspect]
     Active Substance: OSIMERTINIB
     Dosage: 40 MILLIGRAM, QD
     Dates: start: 20250218, end: 20250312
  4. DENOSUMAB [Concomitant]
     Active Substance: DENOSUMAB
     Indication: Non-small cell lung cancer
     Dosage: 120 MILLIGRAM, Q4W
     Dates: start: 20241204
  5. CALCIUM CARBONATE\CHOLECALCIFEROL\MAGNESIUM CARBONATE [Concomitant]
     Active Substance: CALCIUM CARBONATE\CHOLECALCIFEROL\MAGNESIUM CARBONATE
     Indication: Non-small cell lung cancer
     Dosage: 2 DOSAGE FORM, QD
     Dates: start: 20241204
  6. MAGNESIUM OXIDE [Concomitant]
     Active Substance: MAGNESIUM OXIDE
     Indication: Constipation
     Dosage: 330 MILLIGRAM, TID
     Dates: start: 20241205
  7. ESOMEPRAZOLE [Concomitant]
     Active Substance: ESOMEPRAZOLE
     Indication: Abdominal discomfort
     Dosage: 20 MILLIGRAM, QD
     Dates: start: 20241213
  8. RITODRINE [Concomitant]
     Active Substance: RITODRINE
     Indication: Uterine contractions abnormal
     Dosage: 5 MILLIGRAM, TID
     Dates: start: 20250203
  9. TRIMEBUTINE MALEATE [Concomitant]
     Active Substance: TRIMEBUTINE MALEATE
     Indication: Abdominal discomfort
     Dosage: 100 MILLIGRAM, TID
     Dates: start: 20241216
  10. ANAPEINE [Concomitant]
     Active Substance: ROPIVACAINE HYDROCHLORIDE
     Dosage: DOSE UNKNOWN
     Route: 065
  11. Pethilorfan [Concomitant]
     Dosage: DOSE UNKNOWN
     Route: 065
  12. CARBAZOCHROME [Concomitant]
     Active Substance: CARBAZOCHROME
     Dosage: DOSE UNKNOWN
     Route: 065
  13. TRANEXAMIC ACID [Concomitant]
     Active Substance: TRANEXAMIC ACID
     Dosage: DOSE UNKNOWN
     Route: 065
  14. FENTANYL [Concomitant]
     Active Substance: FENTANYL
     Dosage: DOSE UNKNOWN
     Route: 065
  15. HEPARIN CALCIUM [Concomitant]
     Active Substance: HEPARIN CALCIUM
     Dosage: 10000 DOSAGE FORM
     Route: 065
  16. HEPARIN CALCIUM [Concomitant]
     Active Substance: HEPARIN CALCIUM
     Dosage: 10000 DOSAGE FORM

REACTIONS (2)
  - Oligohydramnios [Unknown]
  - Exposure during pregnancy [Unknown]

NARRATIVE: CASE EVENT DATE: 20241231
